FAERS Safety Report 9685418 (Version 1)
Quarter: 2013Q4

REPORT INFORMATION
  Report Type: Spontaneous
  Country: KR (occurrence: KR)
  Receive Date: 20131113
  Receipt Date: 20131113
  Transmission Date: 20140711
  Serious: Yes (Other)
  Sender: FDA-Public Use
  Company Number: KR-ROXANE LABORATORIES, INC.-2013-RO-01798RO

PATIENT
  Age: 57 Year
  Sex: Female

DRUGS (6)
  1. DIAZEPAM [Suspect]
     Dosage: 20 MG
  2. ZOLPIDEM TARTRATE [Suspect]
     Indication: INSOMNIA
     Dosage: 10 MG
  3. QUETIAPINE FUMARATE [Suspect]
     Dosage: 25 MG
  4. LORAZEPAM [Suspect]
     Dosage: 2 MG
  5. ESCITALOPRAM [Suspect]
     Dosage: 20 MG
  6. PROPYLTHIOURACIL [Suspect]
     Dosage: 50 MG

REACTIONS (3)
  - Sleep-related eating disorder [Recovered/Resolved]
  - Dysarthria [Recovered/Resolved]
  - Limb discomfort [Unknown]
